FAERS Safety Report 5986010-1 (Version None)
Quarter: 2008Q4

REPORT INFORMATION
  Report Type: 
  Country: None (occurrence: None)
  Receive Date: 20081205
  Receipt Date: 20081205
  Transmission Date: 20090506
  Serious: Yes (Hospitalization)
  Sender: FDA-Public Use
  Company Number: None

PATIENT
  Sex: Female
  Weight: 59.8748 kg

DRUGS (5)
  1. OSMOPREP [Suspect]
     Indication: BOWEL PREPARATION
     Dosage: 4 TABLET X 2 DOSES PO
     Route: 048
     Dates: start: 20080928, end: 20080928
  2. OSMOPREP [Suspect]
     Indication: COLONOSCOPY
     Dosage: 4 TABLET X 2 DOSES PO
     Route: 048
     Dates: start: 20080928, end: 20080928
  3. ORAL CONTRACEPTIVE [Concomitant]
  4. CALCIUM [Concomitant]
  5. VITAMIN D [Concomitant]

REACTIONS (2)
  - DRUG HYPERSENSITIVITY [None]
  - DYSPHONIA [None]
